FAERS Safety Report 12320317 (Version 2)
Quarter: 2016Q2

REPORT INFORMATION
  Report Type: Spontaneous
  Country: JP (occurrence: JP)
  Receive Date: 20160429
  Receipt Date: 20160531
  Transmission Date: 20160815
  Serious: Yes (Hospitalization)
  Sender: FDA-Public Use
  Company Number: JP-VALIDUS PHARMACEUTICALS LLC-JP-2016VAL001327

PATIENT
  Age: 88 Year
  Sex: Female

DRUGS (7)
  1. FUROSEMIDE. [Suspect]
     Active Substance: FUROSEMIDE
     Indication: OEDEMA PERIPHERAL
  2. VITAMIN K [Concomitant]
     Active Substance: PHYTONADIONE
     Indication: PRODUCT USED FOR UNKNOWN INDICATION
  3. WARFARIN [Concomitant]
     Active Substance: WARFARIN
     Indication: ANTICOAGULANT THERAPY
  4. FUROSEMIDE. [Suspect]
     Active Substance: FUROSEMIDE
     Indication: ATRIAL FIBRILLATION
     Dosage: 20 MG, QD
  5. SPIRONOLACTONE. [Suspect]
     Active Substance: SPIRONOLACTONE
     Indication: ATRIAL FIBRILLATION
     Dosage: 25 MG, QD
  6. SPIRONOLACTONE. [Suspect]
     Active Substance: SPIRONOLACTONE
     Indication: OEDEMA PERIPHERAL
  7. PILSICAINIDE [Suspect]
     Active Substance: PILSICAINIDE
     Indication: ATRIAL FIBRILLATION
     Dosage: 50 MG, TID

REACTIONS (17)
  - Hyperkalaemia [Recovering/Resolving]
  - Ventricular tachycardia [Unknown]
  - Blood pressure decreased [Unknown]
  - Electrocardiogram QT prolonged [Recovering/Resolving]
  - Depressed level of consciousness [Recovered/Resolved]
  - Blood urea increased [Recovering/Resolving]
  - Decreased appetite [Unknown]
  - Alveolar oxygen partial pressure increased [Unknown]
  - Electrocardiogram QRS complex prolonged [Recovering/Resolving]
  - Acute prerenal failure [Recovering/Resolving]
  - Bradycardia [Recovering/Resolving]
  - Dehydration [Unknown]
  - Blood creatinine increased [Recovering/Resolving]
  - Metabolic acidosis [Unknown]
  - Blood bicarbonate decreased [Unknown]
  - Toxicity to various agents [Recovering/Resolving]
  - Electrocardiogram QRS complex prolonged [Unknown]
